FAERS Safety Report 11818011 (Version 3)
Quarter: 2016Q2

REPORT INFORMATION
  Report Type: Spontaneous
  Country: US (occurrence: US)
  Receive Date: 20151210
  Receipt Date: 20160426
  Transmission Date: 20160815
  Serious: No
  Sender: FDA-Public Use
  Company Number: US-JNJFOC-20151123656

PATIENT
  Age: 8 Year
  Sex: Male

DRUGS (43)
  1. SEROQUEL [Suspect]
     Active Substance: QUETIAPINE FUMARATE
     Indication: GENERALISED ANXIETY DISORDER
     Route: 048
     Dates: start: 201105
  2. SEROQUEL [Suspect]
     Active Substance: QUETIAPINE FUMARATE
     Indication: GENERALISED ANXIETY DISORDER
     Route: 048
     Dates: start: 2011, end: 2012
  3. SEROQUEL [Suspect]
     Active Substance: QUETIAPINE FUMARATE
     Indication: PARENT-CHILD PROBLEM
     Route: 048
     Dates: start: 200902, end: 200903
  4. SEROQUEL [Suspect]
     Active Substance: QUETIAPINE FUMARATE
     Indication: CONDUCT DISORDER
     Route: 048
     Dates: start: 201203
  5. SEROQUEL [Suspect]
     Active Substance: QUETIAPINE FUMARATE
     Indication: AFFECTIVE DISORDER
     Route: 048
     Dates: start: 2011, end: 2012
  6. SEROQUEL [Suspect]
     Active Substance: QUETIAPINE FUMARATE
     Indication: OPPOSITIONAL DEFIANT DISORDER
     Route: 048
     Dates: start: 200902, end: 200903
  7. RISPERIDONE. [Suspect]
     Active Substance: RISPERIDONE
     Indication: OPPOSITIONAL DEFIANT DISORDER
     Route: 048
     Dates: start: 201003, end: 201211
  8. SEROQUEL [Suspect]
     Active Substance: QUETIAPINE FUMARATE
     Indication: PARENT-CHILD PROBLEM
     Route: 048
     Dates: start: 2011, end: 2012
  9. SEROQUEL [Suspect]
     Active Substance: QUETIAPINE FUMARATE
     Indication: CONDUCT DISORDER
     Route: 048
     Dates: start: 2011, end: 2012
  10. SEROQUEL [Suspect]
     Active Substance: QUETIAPINE FUMARATE
     Indication: OPPOSITIONAL DEFIANT DISORDER
     Dosage: XR VARYING DOSES 150 MG AND 200 MG
     Route: 048
     Dates: start: 201010, end: 201111
  11. RISPERIDONE. [Suspect]
     Active Substance: RISPERIDONE
     Indication: ATTENTION DEFICIT/HYPERACTIVITY DISORDER
     Route: 048
     Dates: start: 200910
  12. RISPERIDONE. [Suspect]
     Active Substance: RISPERIDONE
     Indication: OPPOSITIONAL DEFIANT DISORDER
     Route: 048
     Dates: start: 201001, end: 201003
  13. SEROQUEL [Suspect]
     Active Substance: QUETIAPINE FUMARATE
     Indication: GENERALISED ANXIETY DISORDER
     Route: 048
     Dates: start: 200902, end: 200903
  14. SEROQUEL [Suspect]
     Active Substance: QUETIAPINE FUMARATE
     Indication: PARENT-CHILD PROBLEM
     Dosage: XR VARYING DOSES 150 MG AND 200 MG
     Route: 048
     Dates: start: 201010, end: 201111
  15. SEROQUEL [Suspect]
     Active Substance: QUETIAPINE FUMARATE
     Indication: CONDUCT DISORDER
     Dosage: XR VARYING DOSES 150 MG AND 200 MG
     Route: 048
     Dates: start: 201010, end: 201111
  16. SEROQUEL [Suspect]
     Active Substance: QUETIAPINE FUMARATE
     Indication: AFFECTIVE DISORDER
     Dosage: XR VARYING DOSES 150 MG AND 200 MG
     Route: 048
     Dates: start: 201010, end: 201111
  17. SEROQUEL [Suspect]
     Active Substance: QUETIAPINE FUMARATE
     Indication: ATTENTION DEFICIT/HYPERACTIVITY DISORDER
     Route: 048
     Dates: start: 2011, end: 2012
  18. SEROQUEL [Suspect]
     Active Substance: QUETIAPINE FUMARATE
     Indication: GENERALISED ANXIETY DISORDER
     Route: 048
     Dates: start: 201203
  19. SEROQUEL [Suspect]
     Active Substance: QUETIAPINE FUMARATE
     Indication: ATTENTION DEFICIT/HYPERACTIVITY DISORDER
     Route: 048
     Dates: start: 201203
  20. SEROQUEL [Suspect]
     Active Substance: QUETIAPINE FUMARATE
     Indication: ATTENTION DEFICIT/HYPERACTIVITY DISORDER
     Dosage: XR VARYING DOSES 150 MG AND 200 MG
     Route: 048
     Dates: start: 201010, end: 201111
  21. SEROQUEL [Suspect]
     Active Substance: QUETIAPINE FUMARATE
     Indication: OPPOSITIONAL DEFIANT DISORDER
     Route: 048
     Dates: start: 201203
  22. RISPERIDONE. [Suspect]
     Active Substance: RISPERIDONE
     Indication: AFFECTIVE DISORDER
     Route: 048
     Dates: start: 201003, end: 201211
  23. RISPERIDONE. [Suspect]
     Active Substance: RISPERIDONE
     Indication: ATTENTION DEFICIT/HYPERACTIVITY DISORDER
     Route: 048
     Dates: start: 201001, end: 201003
  24. RISPERIDONE. [Suspect]
     Active Substance: RISPERIDONE
     Indication: OPPOSITIONAL DEFIANT DISORDER
     Route: 048
     Dates: start: 200904
  25. RISPERIDONE. [Suspect]
     Active Substance: RISPERIDONE
     Indication: OPPOSITIONAL DEFIANT DISORDER
     Route: 048
     Dates: start: 200910
  26. SEROQUEL [Suspect]
     Active Substance: QUETIAPINE FUMARATE
     Indication: PARENT-CHILD PROBLEM
     Route: 048
     Dates: start: 201203
  27. SEROQUEL [Suspect]
     Active Substance: QUETIAPINE FUMARATE
     Indication: AFFECTIVE DISORDER
     Route: 048
     Dates: start: 200902, end: 200903
  28. RISPERIDONE. [Suspect]
     Active Substance: RISPERIDONE
     Indication: PRODUCT USED FOR UNKNOWN INDICATION
     Route: 048
  29. RISPERIDONE. [Suspect]
     Active Substance: RISPERIDONE
     Indication: AFFECTIVE DISORDER
     Route: 048
     Dates: start: 200910
  30. RISPERIDONE. [Suspect]
     Active Substance: RISPERIDONE
     Indication: ATTENTION DEFICIT/HYPERACTIVITY DISORDER
     Route: 048
     Dates: start: 201003, end: 201211
  31. SEROQUEL [Suspect]
     Active Substance: QUETIAPINE FUMARATE
     Indication: AFFECTIVE DISORDER
     Route: 048
     Dates: start: 201105
  32. SEROQUEL [Suspect]
     Active Substance: QUETIAPINE FUMARATE
     Indication: OPPOSITIONAL DEFIANT DISORDER
     Route: 048
     Dates: start: 2011, end: 2012
  33. RISPERIDONE. [Suspect]
     Active Substance: RISPERIDONE
     Indication: AFFECTIVE DISORDER
     Route: 048
     Dates: start: 201001, end: 201003
  34. RISPERIDONE. [Suspect]
     Active Substance: RISPERIDONE
     Indication: ATTENTION DEFICIT/HYPERACTIVITY DISORDER
     Route: 048
     Dates: start: 200904
  35. SEROQUEL [Suspect]
     Active Substance: QUETIAPINE FUMARATE
     Indication: GENERALISED ANXIETY DISORDER
     Dosage: XR VARYING DOSES 150 MG AND 200 MG
     Route: 048
     Dates: start: 201010, end: 201111
  36. SEROQUEL [Suspect]
     Active Substance: QUETIAPINE FUMARATE
     Indication: CONDUCT DISORDER
     Route: 048
     Dates: start: 200902, end: 200903
  37. SEROQUEL [Suspect]
     Active Substance: QUETIAPINE FUMARATE
     Indication: AFFECTIVE DISORDER
     Route: 048
     Dates: start: 201203
  38. SEROQUEL [Suspect]
     Active Substance: QUETIAPINE FUMARATE
     Indication: ATTENTION DEFICIT/HYPERACTIVITY DISORDER
     Route: 048
     Dates: start: 201105
  39. SEROQUEL [Suspect]
     Active Substance: QUETIAPINE FUMARATE
     Indication: OPPOSITIONAL DEFIANT DISORDER
     Route: 048
     Dates: start: 201105
  40. RISPERIDONE. [Suspect]
     Active Substance: RISPERIDONE
     Indication: AFFECTIVE DISORDER
     Route: 048
     Dates: start: 200904
  41. SEROQUEL [Suspect]
     Active Substance: QUETIAPINE FUMARATE
     Indication: PARENT-CHILD PROBLEM
     Route: 048
     Dates: start: 201105
  42. SEROQUEL [Suspect]
     Active Substance: QUETIAPINE FUMARATE
     Indication: CONDUCT DISORDER
     Route: 048
     Dates: start: 201105
  43. SEROQUEL [Suspect]
     Active Substance: QUETIAPINE FUMARATE
     Indication: ATTENTION DEFICIT/HYPERACTIVITY DISORDER
     Route: 048
     Dates: start: 200902, end: 200903

REACTIONS (4)
  - Off label use [Unknown]
  - Emotional distress [Unknown]
  - Gynaecomastia [Unknown]
  - Product use issue [Unknown]

NARRATIVE: CASE EVENT DATE: 200904
